FAERS Safety Report 11090449 (Version 1)
Quarter: 2015Q2

REPORT INFORMATION
  Report Type: Other
  Country: RU (occurrence: RU)
  Receive Date: 20150505
  Receipt Date: 20150505
  Transmission Date: 20150821
  Serious: Yes (Congenital Anomaly)
  Sender: FDA-Public Use
  Company Number: RU-EMD SERONO-8023729

PATIENT
  Sex: Male

DRUGS (1)
  1. RECOMBINANT HUMAN FOLLICLE-STIMULATING HORMONE (R-HFSH) [Suspect]
     Active Substance: FOLLITROPIN
     Route: 050

REACTIONS (1)
  - Beckwith-Wiedemann syndrome [Unknown]
